FAERS Safety Report 10644278 (Version 1)
Quarter: 2014Q4

REPORT INFORMATION
  Report Type: Spontaneous
  Country: US (occurrence: US)
  Receive Date: 20141210
  Receipt Date: 20141210
  Transmission Date: 20150529
  Serious: Yes (Other)
  Sender: FDA-Public Use
  Company Number: US-GILEAD-2014-0126213

PATIENT
  Age: 68 Year
  Sex: Female

DRUGS (10)
  1. FUROSEMIDE. [Concomitant]
     Active Substance: FUROSEMIDE
  2. COUMADIN [Concomitant]
     Active Substance: WARFARIN SODIUM
  3. METOPROLOL                         /00376903/ [Concomitant]
  4. POTASSIUM [Concomitant]
     Active Substance: POTASSIUM
  5. SYNTHROID [Concomitant]
     Active Substance: LEVOTHYROXINE SODIUM
  6. REVATIO [Concomitant]
     Active Substance: SILDENAFIL CITRATE
  7. DIOVAN [Concomitant]
     Active Substance: VALSARTAN
  8. LETAIRIS [Suspect]
     Active Substance: AMBRISENTAN
     Indication: PULMONARY HYPERTENSION
     Dosage: 10 MG, QD
     Route: 065
     Dates: start: 20100506
  9. VENTAVIS [Suspect]
     Active Substance: ILOPROST
     Indication: PRODUCT USED FOR UNKNOWN INDICATION
     Route: 065
     Dates: end: 20141126
  10. FOSAMAX [Concomitant]
     Active Substance: ALENDRONATE SODIUM

REACTIONS (1)
  - Respiratory distress [Recovering/Resolving]
